FAERS Safety Report 6330293-5 (Version None)
Quarter: 2009Q3

REPORT INFORMATION
  Report Type: 
  Country: None (occurrence: None)
  Receive Date: 20090827
  Receipt Date: 20090709
  Transmission Date: 20100115
  Serious: No
  Sender: FDA-Public Use
  Company Number: US-KINGPHARMUSA00001-K200900819

PATIENT
  Sex: Female
  Weight: 92.971 kg

DRUGS (5)
  1. FLECTOR [Suspect]
     Indication: ARTHRALGIA
     Dosage: 1 PATCH, QHS
     Route: 061
     Dates: start: 20090707, end: 20090709
  2. PROTONIX [Concomitant]
     Indication: GASTROOESOPHAGEAL REFLUX DISEASE
     Dosage: UNK
     Route: 048
  3. LYRICA [Concomitant]
     Indication: NEURALGIA
     Dosage: UNK
     Route: 048
  4. DITROPAN [Concomitant]
     Indication: HYPERTONIC BLADDER
     Dosage: 5 MG, UNK
     Route: 048
  5. CRESTOR [Concomitant]
     Indication: BLOOD TRIGLYCERIDES INCREASED
     Dosage: UNK
     Route: 048

REACTIONS (4)
  - BLOOD PRESSURE INCREASED [None]
  - HEADACHE [None]
  - HEART RATE INCREASED [None]
  - PALPITATIONS [None]
